FAERS Safety Report 7608799-8 (Version None)
Quarter: 2011Q3

REPORT INFORMATION
  Report Type: 
  Country: None (occurrence: None)
  Receive Date: 20110714
  Receipt Date: 20110712
  Transmission Date: 20111222
  Serious: Yes (Other)
  Sender: FDA-Public Use
  Company Number: JP-PFIZER INC-2011157610

PATIENT
  Age: 74 Year
  Sex: Male
  Weight: 70 kg

DRUGS (6)
  1. ALLOPURINOL [Concomitant]
     Indication: HYPERURICAEMIA
     Dosage: 100 MG, 1X/DAY
     Route: 048
  2. SYAKUYAKUKANZOTO [Concomitant]
     Dosage: UNK
     Route: 048
  3. LOXONIN [Concomitant]
     Indication: INTERCOSTAL NEURALGIA
     Dosage: 60 MG, 3X/DAY
     Route: 048
     Dates: start: 20110628
  4. LYRICA [Suspect]
     Indication: INTERCOSTAL NEURALGIA
     Dosage: 25 MG, 2X/DAY
     Route: 048
     Dates: start: 20110628
  5. VALSARTAN [Concomitant]
     Indication: HYPERTENSION
     Dosage: 80 MG, 1X/DAY
     Route: 048
  6. LANSOPRAZOLE [Concomitant]
     Indication: GASTRITIS
     Dosage: 15 MG, 1X/DAY
     Route: 048

REACTIONS (2)
  - OEDEMA PERIPHERAL [None]
  - BLOOD GLUCOSE INCREASED [None]
